FAERS Safety Report 15978665 (Version 1)
Quarter: 2019Q1

REPORT INFORMATION
  Report Type: Spontaneous
  Country: US (occurrence: US)
  Receive Date: 20190219
  Receipt Date: 20190219
  Transmission Date: 20190418
  Serious: Yes (Other)
  Sender: FDA-Public Use
  Company Number: US-GLAXOSMITHKLINE-US2019GSK025385

PATIENT
  Sex: Female

DRUGS (1)
  1. CARVEDILOL PHOSPHATE. [Suspect]
     Active Substance: CARVEDILOL PHOSPHATE
     Indication: HYPERTENSION
     Dosage: 10 MG, UNK

REACTIONS (7)
  - Surgery [Unknown]
  - Malaise [Unknown]
  - Drug ineffective [Unknown]
  - Colon cancer [Unknown]
  - Hernia repair [Unknown]
  - Product substitution issue [Unknown]
  - Hernia [Unknown]
